FAERS Safety Report 17089281 (Version 1)
Quarter: 2019Q4

REPORT INFORMATION
  Report Type: Spontaneous
  Country: HR (occurrence: HR)
  Receive Date: 20191128
  Receipt Date: 20191128
  Transmission Date: 20200122
  Serious: Yes (Other)
  Sender: FDA-Public Use
  Company Number: HR-BAUSCH-BL-2019-063124

PATIENT
  Age: 31 Year
  Sex: Male
  Weight: 102 kg

DRUGS (3)
  1. RANTUDIL FORTE [Interacting]
     Active Substance: ACEMETACIN
     Indication: PANNICULITIS
     Route: 048
     Dates: start: 20191030, end: 20191030
  2. NORMABEL [Concomitant]
     Active Substance: DIAZEPAM
     Indication: PANNICULITIS
     Route: 048
     Dates: start: 20190830
  3. DICLORAPID [Suspect]
     Active Substance: DICLOFENAC SODIUM
     Indication: PANNICULITIS
     Route: 048
     Dates: start: 20191030

REACTIONS (3)
  - Abdominal pain upper [Recovered/Resolved]
  - Faeces discoloured [Recovered/Resolved]
  - Drug interaction [Recovered/Resolved]

NARRATIVE: CASE EVENT DATE: 20191030
